FAERS Safety Report 7394097-7 (Version None)
Quarter: 2011Q2

REPORT INFORMATION
  Report Type: 
  Country: None (occurrence: None)
  Receive Date: 20110405
  Receipt Date: 20110331
  Transmission Date: 20111010
  Serious: No
  Sender: FDA-Public Use
  Company Number: US-TEVA-274412USA

PATIENT
  Sex: Female
  Weight: 60.836 kg

DRUGS (3)
  1. ALBUTEROL SULFATE AUTOHALER [Suspect]
     Dosage: 1 PUFF IN AM 1 PUFF IN PM
     Route: 055
     Dates: start: 20110304
  2. HYZAAR [Concomitant]
  3. DILTIAZEM HYDROCHLORIDE [Concomitant]

REACTIONS (2)
  - NAUSEA [None]
  - DECREASED APPETITE [None]
